FAERS Safety Report 15597598 (Version 1)
Quarter: 2018Q4

REPORT INFORMATION
  Report Type: Spontaneous
  Country: US (occurrence: US)
  Receive Date: 20181108
  Receipt Date: 20181108
  Transmission Date: 20190205
  Serious: Yes (Hospitalization)
  Sender: FDA-Public Use
  Company Number: US-ASTRAZENECA-2018SF43568

PATIENT
  Age: 72 Year
  Sex: Female

DRUGS (2)
  1. SEROQUEL [Suspect]
     Active Substance: QUETIAPINE FUMARATE
     Indication: PRODUCT USED FOR UNKNOWN INDICATION
     Route: 048
  2. LEVODOPA [Concomitant]
     Active Substance: LEVODOPA

REACTIONS (8)
  - Delusion [Recovered/Resolved]
  - Product used for unknown indication [Not Recovered/Not Resolved]
  - Abnormal behaviour [Recovered/Resolved]
  - Off label use [Not Recovered/Not Resolved]
  - Insomnia [Recovered/Resolved]
  - Product dose omission [Unknown]
  - Gait inability [Recovered/Resolved]
  - Dysstasia [Recovered/Resolved]
